FAERS Safety Report 25903760 (Version 3)
Quarter: 2025Q4

REPORT INFORMATION
  Report Type: Report from Study
  Country: US (occurrence: US)
  Receive Date: 20251010
  Receipt Date: 20251029
  Transmission Date: 20260117
  Serious: Yes (Hospitalization, Other)
  Sender: ALEXION PHARMACEUTICALS
  Company Number: US-AstraZeneca-CH-00955994A

PATIENT
  Sex: Male
  Weight: 99.79 kg

DRUGS (1)
  1. SOLIRIS [Suspect]
     Active Substance: ECULIZUMAB
     Indication: Myasthenia gravis
     Dosage: 1200 MILLIGRAM, Q2W
     Dates: start: 202503

REACTIONS (7)
  - Pneumonia [Recovered/Resolved]
  - Urinary tract infection [Recovered/Resolved]
  - Dementia [Unknown]
  - Hip fracture [Unknown]
  - Fall [Unknown]
  - Mobility decreased [Unknown]
  - Intentional dose omission [Unknown]
